FAERS Safety Report 9426071 (Version 2)
Quarter: 2013Q4

REPORT INFORMATION
  Report Type: Spontaneous
  Country: JP (occurrence: JP)
  Receive Date: 20130730
  Receipt Date: 20131018
  Transmission Date: 20140711
  Serious: Yes (Other)
  Sender: FDA-Public Use
  Company Number: JP-ROCHE-1251847

PATIENT
  Age: 55 Year
  Sex: Female

DRUGS (10)
  1. AVASTIN [Suspect]
     Indication: SMALL INTESTINE CARCINOMA METASTATIC
     Route: 041
  2. AVASTIN [Suspect]
     Indication: OFF LABEL USE
  3. XELODA [Suspect]
     Indication: SMALL INTESTINE CARCINOMA METASTATIC
     Dosage: DOSAGE IS UNCERTAIN.
     Route: 048
  4. XELODA [Suspect]
     Indication: OFF LABEL USE
     Dosage: DOSAGE IS UNCERTAIN.
     Route: 048
  5. ELPLAT [Suspect]
     Indication: SMALL INTESTINE CARCINOMA METASTATIC
     Dosage: DOSAGE IS UNCERTAIN.
     Route: 042
  6. ELPLAT [Suspect]
     Indication: SMALL INTESTINE CARCINOMA METASTATIC
     Dosage: DOSAGE IS UNCERTAIN.
     Route: 042
  7. 5-FU [Suspect]
     Indication: SMALL INTESTINE CARCINOMA METASTATIC
     Dosage: DOSAGE IS UNCERTAIN.
     Route: 040
  8. 5-FU [Suspect]
     Indication: SMALL INTESTINE CARCINOMA METASTATIC
     Dosage: DOSAGE IS UNCERTAIN.
     Route: 041
  9. IRINOTECAN HYDROCHLORIDE [Suspect]
     Indication: SMALL INTESTINE CARCINOMA METASTATIC
     Dosage: DOSAGE IS UNCERTAIN.
     Route: 042
  10. CALCIUM LEVOFOLINATE [Suspect]
     Indication: SMALL INTESTINE CARCINOMA METASTATIC
     Dosage: DOSAGE IS UNCERTAIN.
     Route: 042

REACTIONS (4)
  - Lung disorder [Unknown]
  - Neuropathy peripheral [Unknown]
  - Drug hypersensitivity [Unknown]
  - Off label use [Unknown]
